FAERS Safety Report 11209191 (Version 1)
Quarter: 2015Q2

REPORT INFORMATION
  Report Type: Spontaneous
  Country: US (occurrence: US)
  Receive Date: 20150622
  Receipt Date: 20150622
  Transmission Date: 20150821
  Serious: Yes (Other)
  Sender: FDA-Public Use
  Company Number: PHHY2015US070739

PATIENT
  Age: 16 Year
  Sex: Male

DRUGS (1)
  1. MINOCYCLINE [Suspect]
     Active Substance: MINOCYCLINE\MINOCYCLINE HYDROCHLORIDE
     Indication: ACNE
     Dosage: 50 MG, BID
     Route: 065

REACTIONS (4)
  - Testicular swelling [Recovered/Resolved]
  - Tenderness [Recovered/Resolved]
  - Testicular pain [Recovered/Resolved]
  - Nausea [Unknown]
